FAERS Safety Report 8605609 (Version 2)
Quarter: 2013Q1

REPORT INFORMATION
  Report Type: Spontaneous
  Country: ES (occurrence: ES)
  Receive Date: 20120608
  Receipt Date: 20130123
  Transmission Date: 20140127
  Serious: Yes (Death)
  Sender: FDA-Public Use
  Company Number: ES-JNJFOC-20120603303

PATIENT
  Sex: Male
  Weight: 53 kg

DRUGS (3)
  1. PREZISTA [Suspect]
     Indication: HIV INFECTION
     Route: 048
     Dates: start: 20091216, end: 20100202
  2. TRUVADA [Concomitant]
     Indication: HIV INFECTION
     Route: 065
     Dates: start: 20091216
  3. RITONAVIR [Concomitant]
     Indication: HIV INFECTION
     Route: 065
     Dates: start: 20091216, end: 20100202

REACTIONS (3)
  - Non-Hodgkin^s lymphoma [Fatal]
  - Gene mutation [Unknown]
  - Rash pruritic [Recovered/Resolved]
